FAERS Safety Report 12987177 (Version 1)
Quarter: 2016Q4

REPORT INFORMATION
  Report Type: Spontaneous
  Country: CA (occurrence: CA)
  Receive Date: 20161130
  Receipt Date: 20161130
  Transmission Date: 20170207
  Serious: Yes (Life-Threatening, Hospitalization, Disabling)
  Sender: FDA-Public Use
  Company Number: CA-JNJFOC-20161128842

PATIENT
  Age: 49 Year
  Sex: Female
  Weight: 61.24 kg

DRUGS (3)
  1. ZOPICLONE [Concomitant]
     Active Substance: ZOPICLONE
     Route: 065
  2. RISPERDAL [Suspect]
     Active Substance: RISPERIDONE
     Indication: PSYCHIATRIC SYMPTOM
     Dosage: REDUCED DOSE
     Route: 048
     Dates: end: 2005
  3. RISPERDAL [Suspect]
     Active Substance: RISPERIDONE
     Indication: PSYCHIATRIC SYMPTOM
     Dosage: 2 TABLETS OF 1 MG
     Route: 048
     Dates: start: 2001

REACTIONS (14)
  - Injury [Unknown]
  - Blood pressure fluctuation [Unknown]
  - Drug withdrawal convulsions [Unknown]
  - Dysarthria [Unknown]
  - Meningism [Unknown]
  - Amnesia [Unknown]
  - Eye disorder [Unknown]
  - Skin necrosis [Recovered/Resolved]
  - Spider vein [Unknown]
  - Urinary retention [Unknown]
  - Lymphoedema [Unknown]
  - Diabetes mellitus [Unknown]
  - Coma [Unknown]
  - Withdrawal syndrome [Unknown]

NARRATIVE: CASE EVENT DATE: 200601
